FAERS Safety Report 7048277-0 (Version None)
Quarter: 2010Q4

REPORT INFORMATION
  Report Type: 
  Country: None (occurrence: None)
  Receive Date: 20101014
  Receipt Date: 20101014
  Transmission Date: 20110411
  Serious: Yes (Death)
  Sender: FDA-Public Use
  Company Number: None

PATIENT
  Age: 78 Year
  Sex: Female
  Weight: 95 kg

DRUGS (3)
  1. WARFARIN SODIUM [Suspect]
     Indication: ATRIAL FIBRILLATION
     Dosage: 2.5MG DAILY PO
     Route: 048
  2. DILTIAZEM [Concomitant]
  3. SIMVASTATIN [Concomitant]

REACTIONS (7)
  - ARTHRALGIA [None]
  - BRAIN COMPRESSION [None]
  - BRAIN MIDLINE SHIFT [None]
  - FALL [None]
  - HAEMORRHAGIC CEREBRAL INFARCTION [None]
  - HEAD INJURY [None]
  - SUBDURAL HAEMATOMA [None]
